FAERS Safety Report 9863409 (Version 2)
Quarter: 2014Q1

REPORT INFORMATION
  Report Type: Spontaneous
  Country: JP (occurrence: JP)
  Receive Date: 20140203
  Receipt Date: 20140312
  Transmission Date: 20141002
  Serious: Yes (Hospitalization)
  Sender: FDA-Public Use
  Company Number: PHJP2014JP000490

PATIENT
  Age: 19 Year
  Sex: Male
  Weight: 59 kg

DRUGS (8)
  1. TEGRETOL TAB 200MG [Suspect]
     Dosage: UNK UKN, UNK
     Route: 048
     Dates: start: 20131122, end: 20131203
  2. ZYPREXA [Concomitant]
     Dosage: 10 MG, UNK
     Route: 048
     Dates: start: 201306
  3. ROHYPNOL [Concomitant]
     Dosage: 2 MG, UNK
     Route: 048
     Dates: start: 201306
  4. TASMOLIN [Concomitant]
     Dosage: 1 MG, BID
     Route: 048
     Dates: start: 201306
  5. PREDONINE [Concomitant]
     Dosage: UNK UKN, UNK
     Route: 065
  6. BIOFERMIN [Concomitant]
     Dosage: UNK UKN, UNK
     Route: 048
  7. CALONAL [Concomitant]
     Dosage: UNK UKN, UNK
     Route: 065
  8. ONON [Concomitant]
     Dosage: UNK UKN, UNK
     Route: 048

REACTIONS (6)
  - Drug eruption [Recovered/Resolved]
  - Generalised erythema [Recovered/Resolved]
  - Pyrexia [Recovered/Resolved]
  - Pruritus [Recovered/Resolved]
  - Insomnia [Recovered/Resolved]
  - Headache [Recovered/Resolved]
